FAERS Safety Report 16722453 (Version 8)
Quarter: 2020Q2

REPORT INFORMATION
  Report Type: Spontaneous
  Country: US (occurrence: US)
  Receive Date: 20190820
  Receipt Date: 20200625
  Transmission Date: 20200713
  Serious: Yes (Death, Hospitalization)
  Sender: FDA-Public Use
  Company Number: US-ACTELION-A-NJ2019-194410

PATIENT
  Age: 34 Year
  Sex: Female
  Weight: 49.43 kg

DRUGS (8)
  1. ADEMPAS [Concomitant]
     Active Substance: RIOCIGUAT
  2. VELETRI [Suspect]
     Active Substance: EPOPROSTENOL
     Dosage: 9.75 NG/KG, PER MIN
     Route: 042
  3. VELETRI [Suspect]
     Active Substance: EPOPROSTENOL
     Dosage: 9.8 NG/KG, PER MIN
     Route: 042
  4. AMLODIPINE [Concomitant]
     Active Substance: AMLODIPINE BESYLATE
  5. VELETRI [Suspect]
     Active Substance: EPOPROSTENOL
     Indication: PULMONARY HYPERTENSION
     Dosage: 8 NG/KG, PER MIN
     Route: 042
     Dates: start: 20190804
  6. VELETRI [Suspect]
     Active Substance: EPOPROSTENOL
     Dosage: 10.25 NG/KG, PER MIN
     Route: 042
  7. VELETRI [Suspect]
     Active Substance: EPOPROSTENOL
     Dosage: 11.25 NG/KG, PER MIN
     Route: 042
  8. VELETRI [Suspect]
     Active Substance: EPOPROSTENOL
     Dosage: 7 NG/KG, PER MIN
     Route: 042

REACTIONS (12)
  - Migraine [Recovered/Resolved]
  - Catheterisation cardiac [Unknown]
  - Headache [Recovering/Resolving]
  - General physical health deterioration [Unknown]
  - Disease progression [Unknown]
  - Hypotension [Unknown]
  - Sinusitis [Unknown]
  - Pulmonary oedema [Unknown]
  - Fluid retention [Unknown]
  - Syncope [Unknown]
  - Death [Fatal]
  - Vomiting [Recovering/Resolving]

NARRATIVE: CASE EVENT DATE: 20200613
